FAERS Safety Report 23486688 (Version 1)
Quarter: 2024Q1

REPORT INFORMATION
  Report Type: Spontaneous
  Country: US (occurrence: None)
  Receive Date: 20240205
  Receipt Date: 20240205
  Transmission Date: 20240409
  Serious: Yes (Hospitalization, Disabling, Other)
  Sender: FDA-Public Use
  Company Number: None

PATIENT
  Age: 55 Year
  Sex: Female
  Weight: 67.5 kg

DRUGS (17)
  1. EVUSHELD [Suspect]
     Active Substance: CILGAVIMAB\TIXAGEVIMAB
     Indication: COVID-19 prophylaxis
     Dosage: OTHER FREQUENCY : EVERY 3-6 MONTHS;?
     Route: 058
     Dates: start: 20200322, end: 20220303
  2. MODERNA COVID-19 VACCINE [Suspect]
     Active Substance: ELASOMERAN
     Dosage: OTHER FREQUENCY : EVERY 3-6 MONTHS;?
     Route: 058
  3. PFIZER-BIONTECH COVID-19 VACCINE, BIVALENT [Suspect]
     Active Substance: BNT162B2 OMICRON (BA.4/BA.5)\TOZINAMERAN
     Dosage: OTHER FREQUENCY : EVERY 3-6 MONTHS;?
     Route: 058
  4. KEPPRA [Concomitant]
     Active Substance: LEVETIRACETAM
  5. HYDROCORTISONE [Concomitant]
     Active Substance: HYDROCORTISONE
  6. FOLIC ACID [Concomitant]
     Active Substance: FOLIC ACID
  7. METHOTREXATE [Concomitant]
     Active Substance: METHOTREXATE
  8. VALACYCLOVIR [Concomitant]
     Active Substance: VALACYCLOVIR HYDROCHLORIDE
  9. GRISEOFULVIN [Concomitant]
     Active Substance: GRISEOFULVIN
  10. ATORVASTATIN [Concomitant]
     Active Substance: ATORVASTATIN
  11. CALCIUM [Concomitant]
     Active Substance: CALCIUM
  12. WIXELA INHUB [Concomitant]
     Active Substance: FLUTICASONE PROPIONATE\SALMETEROL XINAFOATE
  13. LEVALBUTEROL [Concomitant]
     Active Substance: LEVALBUTEROL
  14. ESTRADIOL [Concomitant]
     Active Substance: ESTRADIOL
  15. SPIRIVA [Concomitant]
     Active Substance: TIOTROPIUM BROMIDE MONOHYDRATE
  16. CICLOPIROX [Concomitant]
     Active Substance: CICLOPIROX\TOCOPHEROL
  17. LUNESTA [Concomitant]
     Active Substance: ESZOPICLONE

REACTIONS (25)
  - Seizure [None]
  - Tremor [None]
  - Asthenia [None]
  - Cognitive disorder [None]
  - Vertigo [None]
  - Dizziness [None]
  - Vertigo [None]
  - Balance disorder [None]
  - Skin discolouration [None]
  - Adrenal insufficiency [None]
  - Muscle twitching [None]
  - Paralysis [None]
  - Transient ischaemic attack [None]
  - Headache [None]
  - Paraesthesia [None]
  - Fatigue [None]
  - Memory impairment [None]
  - Dysmetropsia [None]
  - Dysmetropsia [None]
  - Hallucinations, mixed [None]
  - Illusion [None]
  - Dyspnoea [None]
  - Cerebral small vessel ischaemic disease [None]
  - Giant cell arteritis [None]
  - Epilepsy [None]

NARRATIVE: CASE EVENT DATE: 20220504
